FAERS Safety Report 10148939 (Version 1)
Quarter: 2014Q2

REPORT INFORMATION
  Report Type: Report from Study
  Country: GB (occurrence: GB)
  Receive Date: 20140502
  Receipt Date: 20140502
  Transmission Date: 20141212
  Serious: Yes (Other)
  Sender: FDA-Public Use
  Company Number: GB-ROCHE-1393256

PATIENT
  Sex: 0

DRUGS (1)
  1. ZELBORAF [Suspect]
     Indication: PRODUCT USED FOR UNKNOWN INDICATION
     Route: 065

REACTIONS (2)
  - Drug intolerance [Unknown]
  - Arthralgia [Unknown]
